FAERS Safety Report 8137766-3 (Version None)
Quarter: 2012Q1

REPORT INFORMATION
  Report Type: 
  Country: None (occurrence: None)
  Receive Date: 20120215
  Receipt Date: 20120203
  Transmission Date: 20120608
  Serious: Yes (Other)
  Sender: FDA-Public Use
  Company Number: US-MYLANLABS-2012S1003138

PATIENT
  Age: 7 Decade
  Sex: Female

DRUGS (4)
  1. LOPRESSOR [Concomitant]
  2. VICODIN [Concomitant]
  3. DIGOXIN [Suspect]
     Route: 048
     Dates: start: 20060912, end: 20090826
  4. MOTRIN [Concomitant]

REACTIONS (14)
  - JOINT RANGE OF MOTION DECREASED [None]
  - ASTHENIA [None]
  - CHEST PAIN [None]
  - ELECTROCARDIOGRAM T WAVE ABNORMAL [None]
  - PAIN IN EXTREMITY [None]
  - PALPITATIONS [None]
  - TENDERNESS [None]
  - SUPRAVENTRICULAR TACHYCARDIA [None]
  - DYSPNOEA [None]
  - SINUS TACHYCARDIA [None]
  - HEART RATE INCREASED [None]
  - TENDONITIS [None]
  - DIZZINESS [None]
  - PRESYNCOPE [None]
